FAERS Safety Report 23345146 (Version 1)
Quarter: 2023Q4

REPORT INFORMATION
  Report Type: Spontaneous
  Country: FR (occurrence: FR)
  Receive Date: 20231228
  Receipt Date: 20231228
  Transmission Date: 20240110
  Serious: Yes (Other)
  Sender: FDA-Public Use
  Company Number: FR-AFSSAPS-GR2023001624

PATIENT
  Age: 48 Year
  Sex: Female

DRUGS (3)
  1. DOXAZOSIN [Suspect]
     Active Substance: DOXAZOSIN MESYLATE
     Indication: Product used for unknown indication
     Dosage: 8 MILLIGRAM
     Route: 048
     Dates: start: 20231116, end: 20231116
  2. FLUINDIONE [Suspect]
     Active Substance: FLUINDIONE
     Indication: Product used for unknown indication
     Dosage: 15 MILLIGRAM
     Route: 048
     Dates: start: 20231116
  3. BACLOFEN [Suspect]
     Active Substance: BACLOFEN
     Indication: Product used for unknown indication
     Dosage: 70 MILLIGRAM
     Route: 048
     Dates: start: 20231116

REACTIONS (2)
  - Urinary retention [Recovered/Resolved]
  - Wrong patient received product [Recovered/Resolved]

NARRATIVE: CASE EVENT DATE: 20231116
